FAERS Safety Report 5072596-0 (Version None)
Quarter: 2006Q3

REPORT INFORMATION
  Report Type: 
  Country: None (occurrence: None)
  Receive Date: 20060807
  Receipt Date: 20060301
  Transmission Date: 20061208
  Serious: Yes (Hospitalization)
  Sender: FDA-Public Use
  Company Number: US-ROCHE-438849

PATIENT
  Age: 18 Year
  Sex: Male
  Weight: 60.8 kg

DRUGS (1)
  1. ACCUTANE [Suspect]
     Indication: ACNE
     Route: 048
     Dates: start: 19950911, end: 19960215

REACTIONS (17)
  - ATELECTASIS [None]
  - CARDIAC FAILURE CONGESTIVE [None]
  - CHORIORETINOPATHY [None]
  - COLITIS [None]
  - CROHN'S DISEASE [None]
  - DEPRESSION [None]
  - GASTROENTERITIS VIRAL [None]
  - GASTROOESOPHAGEAL REFLUX DISEASE [None]
  - ILEUS [None]
  - INFLAMMATORY BOWEL DISEASE [None]
  - IRON DEFICIENCY ANAEMIA [None]
  - PANCREATITIS [None]
  - PLEURAL EFFUSION [None]
  - PNEUMONIA [None]
  - PYREXIA [None]
  - SUBCUTANEOUS ABSCESS [None]
  - SUICIDAL IDEATION [None]
